FAERS Safety Report 25803259 (Version 2)
Quarter: 2025Q3

REPORT INFORMATION
  Report Type: Spontaneous
  Country: US (occurrence: US)
  Receive Date: 20250915
  Receipt Date: 20250922
  Transmission Date: 20251021
  Serious: No
  Sender: PHARMING GROUP
  Company Number: US-PHARMING-PHAUS2025001310

PATIENT

DRUGS (2)
  1. RUCONEST [Suspect]
     Active Substance: CONESTAT ALFA
     Indication: Hereditary angioedema with normal C1 esterase inhibitor
     Route: 042
  2. RUCONEST [Suspect]
     Active Substance: CONESTAT ALFA
     Indication: Hereditary angioedema
     Route: 058
     Dates: start: 201803

REACTIONS (6)
  - Nasopharyngitis [Unknown]
  - Laryngitis [Unknown]
  - Cough [Unknown]
  - Pyrexia [Unknown]
  - Incorrect route of product administration [Unknown]
  - Intentional product use issue [Unknown]
